FAERS Safety Report 5765575-9 (Version None)
Quarter: 2008Q2

REPORT INFORMATION
  Report Type: 
  Country: None (occurrence: None)
  Receive Date: 20080605
  Receipt Date: 20080523
  Transmission Date: 20081010
  Serious: Yes (Hospitalization)
  Sender: FDA-Public Use
  Company Number: 2008014204

PATIENT
  Age: 62 Year
  Sex: Male

DRUGS (3)
  1. CETIRIZINE HCL [Suspect]
     Indication: PRURITUS
     Dosage: 10 MG
     Dates: start: 20071115, end: 20071121
  2. HYDROXYZINE HCL [Suspect]
     Indication: PRURITUS
     Dosage: 100 MG, ORAL
     Route: 048
     Dates: start: 20071107, end: 20071121
  3. ZOPICLONE (ZOPICLONE) [Concomitant]

REACTIONS (2)
  - INSOMNIA [None]
  - RASH [None]
